FAERS Safety Report 21744577 (Version 1)
Quarter: 2022Q4

REPORT INFORMATION
  Report Type: Report from Study
  Country: US (occurrence: US)
  Receive Date: 20221218
  Receipt Date: 20221218
  Transmission Date: 20230112
  Serious: No
  Sender: FDA-Public Use
  Company Number: US-ABBVIE-4193240

PATIENT
  Sex: Female
  Weight: 108.4 kg

DRUGS (6)
  1. SKYRIZI [Suspect]
     Active Substance: RISANKIZUMAB-RZAA
     Indication: Illness
     Route: 058
     Dates: start: 20210605
  2. SKYRIZI [Suspect]
     Active Substance: RISANKIZUMAB-RZAA
     Indication: Product used for unknown indication
  3. SKYRIZI [Suspect]
     Active Substance: RISANKIZUMAB-RZAA
     Indication: Psoriasis
  4. BETAMETHASONE DIPROP AUGMENTED [Concomitant]
     Indication: Product used for unknown indication
  5. CLOBETASOL EMOLLIENT [Concomitant]
     Indication: Product used for unknown indication
     Dosage: 0.05% CRM
  6. HYDROCORTISONE-ALOE [Concomitant]
     Indication: Product used for unknown indication
     Dosage: % CREAM(GM)

REACTIONS (4)
  - Psoriasis [Unknown]
  - Scab [Unknown]
  - Feeling abnormal [Unknown]
  - Sleep disorder [Unknown]
